FAERS Safety Report 8383326-9 (Version None)
Quarter: 2012Q2

REPORT INFORMATION
  Report Type: 
  Country: None (occurrence: None)
  Receive Date: 20120524
  Receipt Date: 20120518
  Transmission Date: 20120825
  Serious: Yes (Death, Hospitalization)
  Sender: FDA-Public Use
  Company Number: US-PFIZER INC-2012105875

PATIENT
  Sex: Female

DRUGS (2)
  1. GENOTROPIN [Suspect]
     Indication: DWARFISM
     Dosage: 5 MG, DAILY
     Route: 058
     Dates: start: 20110210
  2. GENOTROPIN [Suspect]
     Indication: HYPOTHYROIDISM

REACTIONS (2)
  - DEATH [None]
  - PNEUMONIA ASPIRATION [None]
